FAERS Safety Report 25607094 (Version 2)
Quarter: 2025Q3

REPORT INFORMATION
  Report Type: Report from Study
  Country: US (occurrence: US)
  Receive Date: 20250725
  Receipt Date: 20250819
  Transmission Date: 20251020
  Serious: Yes (Other)
  Sender: AURINIA PHARMACEUTICALS
  Company Number: US-OTSUKA PHARMACEUTICAL NETHERLANDS B.V.-AUR-009360

PATIENT
  Sex: Female

DRUGS (2)
  1. LUPKYNIS [Suspect]
     Active Substance: VOCLOSPORIN
     Indication: Lupus nephritis
     Dosage: 23.7 MILLIGRAM, BID
     Route: 058
     Dates: start: 20250627
  2. LUPKYNIS [Suspect]
     Active Substance: VOCLOSPORIN
     Dosage: 15.8 MILLIGRAM, BID
     Route: 058

REACTIONS (8)
  - Diplopia [Recovering/Resolving]
  - Hyperthyroidism [Not Recovered/Not Resolved]
  - Hypertension [Unknown]
  - Fluid retention [Recovered/Resolved]
  - Palpitations [Recovered/Resolved]
  - Visual field defect [Recovering/Resolving]
  - Nystagmus [Recovering/Resolving]
  - Abdominal discomfort [Recovering/Resolving]
